FAERS Safety Report 6576816-2 (Version None)
Quarter: 2010Q1

REPORT INFORMATION
  Report Type: 
  Country: None (occurrence: None)
  Receive Date: 20100210
  Receipt Date: 20100208
  Transmission Date: 20100710
  Serious: Yes (Life-Threatening)
  Sender: FDA-Public Use
  Company Number: IT-SANOFI-AVENTIS-2009SA010365

PATIENT
  Age: 40 Year
  Sex: Female

DRUGS (2)
  1. FERLIXIT [Suspect]
     Indication: ANAEMIA
     Route: 041
     Dates: start: 20091218, end: 20091218
  2. FERLIXIT [Suspect]
     Route: 041
     Dates: start: 20091106, end: 20091211

REACTIONS (4)
  - DERMATITIS BULLOUS [None]
  - DYSPNOEA [None]
  - OEDEMA PERIPHERAL [None]
  - SKIN BURNING SENSATION [None]
